FAERS Safety Report 5208363-4 (Version None)
Quarter: 2006Q4

REPORT INFORMATION
  Report Type: 
  Country: None (occurrence: None)
  Receive Date: 20061026
  Receipt Date: 20060808
  Transmission Date: 20070319
  Serious: No
  Sender: FDA-Public Use
  Company Number: 2006094186

PATIENT
  Age: 65 Year
  Sex: Female

DRUGS (8)
  1. LYRICA [Suspect]
     Indication: FIBROMYALGIA
     Dosage: 300 MG (100 MG,3 IN 1 D), ORAL
     Route: 048
     Dates: start: 20060301, end: 20060701
  2. LYRICA [Suspect]
     Indication: PAIN
     Dosage: 300 MG (100 MG,3 IN 1 D), ORAL
     Route: 048
     Dates: start: 20060301, end: 20060701
  3. NEURONTIN [Suspect]
     Indication: PAIN
     Dates: end: 20060301
  4. CYMBALTA [Suspect]
     Indication: PAIN
     Dosage: 60 MG (1 IN 1 D)
  5. LIPITOR [Concomitant]
  6. ESTRADIOL [Concomitant]
  7. TEMAZEPAM [Concomitant]
  8. ALL OTHER NON-THERAPEUTIC PRODUCTS (ALL OTHER NON-THERAPEUTIC PRODUCTS [Concomitant]

REACTIONS (8)
  - ALTERED VISUAL DEPTH PERCEPTION [None]
  - CONSTIPATION [None]
  - DISORIENTATION [None]
  - DRY EYE [None]
  - HEADACHE [None]
  - PHOTOPSIA [None]
  - READING DISORDER [None]
  - WEIGHT INCREASED [None]
